FAERS Safety Report 4330972-5 (Version None)
Quarter: 2004Q1

REPORT INFORMATION
  Report Type: 
  Country: None (occurrence: None)
  Receive Date: 20040329
  Receipt Date: 20040309
  Transmission Date: 20041129
  Serious: No
  Sender: FDA-Public Use
  Company Number: A01200401151

PATIENT
  Age: 38 Year
  Sex: Female

DRUGS (2)
  1. KERLONE [Suspect]
     Indication: HYPERTENSION
     Dosage: 20 MG QD ORAL
     Route: 048
     Dates: end: 20040201
  2. KERLONE [Suspect]
     Indication: TACHYCARDIA
     Dosage: 20 MG QD ORAL
     Route: 048
     Dates: end: 20040201

REACTIONS (4)
  - COMPLICATIONS OF MATERNAL EXPOSURE TO THERAPEUTIC DRUGS [None]
  - INTRA-UTERINE DEATH [None]
  - MATERNAL DRUGS AFFECTING FOETUS [None]
  - PREGNANCY [None]
